FAERS Safety Report 4809863-9 (Version None)
Quarter: 2005Q4

REPORT INFORMATION
  Report Type: 
  Country: None (occurrence: None)
  Receive Date: 20051024
  Receipt Date: 20051010
  Transmission Date: 20060501
  Serious: Yes (Other)
  Sender: FDA-Public Use
  Company Number: 2005141174

PATIENT
  Sex: Female
  Weight: 86.1834 kg

DRUGS (9)
  1. VALDECOXIB [Suspect]
     Indication: ARTHRITIS
     Dosage: 20 MG (10 MG, 2 IN 1 D), ORAL
     Route: 048
     Dates: end: 20050407
  2. VALDECOXIB [Suspect]
     Indication: BACK PAIN
     Dosage: 20 MG (10 MG, 2 IN 1 D), ORAL
     Route: 048
     Dates: end: 20050407
  3. FELDENE [Suspect]
     Indication: ARTHRITIS
     Dosage: 20 MG (20 MG, 1 IN 1 D), ORAL
     Route: 048
     Dates: start: 19810101, end: 20050101
  4. NEURONTIN [Suspect]
     Indication: BACK PAIN
     Dosage: 2400 MG (600 MG, 4 IN 1 D)
  5. ULTRAM [Suspect]
     Indication: BACK PAIN
     Dates: start: 20000101
  6. ZANTAC [Concomitant]
  7. LEVOXYL [Concomitant]
  8. LISINOPRIL [Concomitant]
  9. ATENOLOL [Concomitant]

REACTIONS (14)
  - APATHY [None]
  - BACK PAIN [None]
  - BASEDOW'S DISEASE [None]
  - CONDITION AGGRAVATED [None]
  - DEPRESSION [None]
  - DIFFICULTY IN WALKING [None]
  - DRUG INEFFECTIVE [None]
  - HYPERTENSION [None]
  - HYSTERECTOMY [None]
  - INSOMNIA [None]
  - KNEE ARTHROPLASTY [None]
  - MOBILITY DECREASED [None]
  - PALPITATIONS [None]
  - PROCEDURAL PAIN [None]
